FAERS Safety Report 20237077 (Version 1)
Quarter: 2021Q4

REPORT INFORMATION
  Report Type: Spontaneous
  Country: CN (occurrence: CN)
  Receive Date: 20211228
  Receipt Date: 20211228
  Transmission Date: 20220303
  Serious: Yes (Other)
  Sender: FDA-Public Use
  Company Number: CN-UCBSA-2021059839

PATIENT
  Age: 60 Year
  Sex: Male

DRUGS (1)
  1. KEPPRA [Suspect]
     Active Substance: LEVETIRACETAM
     Indication: Epilepsy
     Dosage: 0.25 GRAM, 2X/DAY (BID)
     Route: 048
     Dates: start: 20211201, end: 20211201

REACTIONS (2)
  - Asthma [Recovering/Resolving]
  - Decreased appetite [Recovering/Resolving]

NARRATIVE: CASE EVENT DATE: 20211201
